FAERS Safety Report 4660202-6 (Version None)
Quarter: 2005Q2

REPORT INFORMATION
  Report Type: 
  Country: None (occurrence: None)
  Receive Date: 20050505
  Receipt Date: 20050107
  Transmission Date: 20051028
  Serious: No
  Sender: FDA-Public Use
  Company Number: 2005USFACT00226

PATIENT
  Age: 49 Year
  Sex: Female
  Weight: 79.4 kg

DRUGS (6)
  1. FACTIVE [Suspect]
     Indication: RESPIRATORY TRACT INFECTION BACTERIAL
     Dosage: 320.00 MG, ORAL
     Route: 048
     Dates: start: 20050105, end: 20050105
  2. ZOLOFT [Concomitant]
  3. LIPITOR [Concomitant]
  4. COZAAR [Concomitant]
  5. HUMALOG [Concomitant]
  6. INSULIN, REGULAR (INSULIN) [Concomitant]

REACTIONS (2)
  - RASH GENERALISED [None]
  - SWELLING [None]
